FAERS Safety Report 6518008-9 (Version None)
Quarter: 2009Q4

REPORT INFORMATION
  Report Type: 
  Country: None (occurrence: None)
  Receive Date: 20091224
  Receipt Date: 20091215
  Transmission Date: 20100525
  Serious: Yes (Death)
  Sender: FDA-Public Use
  Company Number: FR-BRISTOL-MYERS SQUIBB COMPANY-14905178

PATIENT
  Age: 78 Year
  Sex: Male

DRUGS (14)
  1. GLUCOPHAGE [Suspect]
     Indication: DIABETES MELLITUS INADEQUATE CONTROL
     Dates: start: 20080529, end: 20081029
  2. JANUVIA [Suspect]
     Indication: DIABETES MELLITUS INADEQUATE CONTROL
     Dosage: FORM-TABS
     Dates: start: 20080529, end: 20081029
  3. LEVEMIR [Concomitant]
     Indication: TYPE 2 DIABETES MELLITUS
     Dosage: 6-12-12 UI
     Route: 058
     Dates: start: 20081029, end: 20090204
  4. NOVORAPID [Concomitant]
     Indication: TYPE 2 DIABETES MELLITUS
     Dosage: 10-10-12UI
     Route: 058
     Dates: start: 20081029, end: 20090204
  5. DETENSIEL [Concomitant]
     Dosage: DETENSIEL 10MG
  6. LERCANIDIPINE [Concomitant]
     Dosage: LERCAN 20
  7. PLAVIX [Concomitant]
     Dosage: PLAVIX 75
  8. PRAVADUAL [Concomitant]
  9. EUPANTOL [Concomitant]
     Dosage: EUPANTOL 40
  10. BIPERIDYS [Concomitant]
  11. MECIR [Concomitant]
     Dosage: MECIR 0.4
  12. LASILIX [Concomitant]
  13. SERETIDE [Concomitant]
     Dosage: SERETIDE 500 (1 DOSAGE FORM,L MORNING - 1 EVENING)
  14. SPIRIVA [Concomitant]
     Dosage: FORM-CAPSULE

REACTIONS (1)
  - RENAL FAILURE [None]
